FAERS Safety Report 9214329 (Version 1)
Quarter: 2013Q2

REPORT INFORMATION
  Report Type: Spontaneous
  Country: CN (occurrence: CN)
  Receive Date: 20130405
  Receipt Date: 20130405
  Transmission Date: 20140414
  Serious: Yes (Other)
  Sender: FDA-Public Use
  Company Number: CN-ASTRAZENECA-2013SE21371

PATIENT
  Age: 0 Week
  Sex: 0

DRUGS (1)
  1. RHINOCORT [Suspect]
     Route: 015

REACTIONS (1)
  - Foetal growth restriction [Unknown]
